FAERS Safety Report 8601927 (Version 2)
Quarter: 2013Q1

REPORT INFORMATION
  Report Type: Spontaneous
  Country: US (occurrence: US)
  Receive Date: 20120606
  Receipt Date: 20130102
  Transmission Date: 20140127
  Serious: No
  Sender: FDA-Public Use
  Company Number: US-ASTRAZENECA-2009UW12821

PATIENT
  Age: 62 Year
  Sex: Male

DRUGS (6)
  1. SEROQUEL [Suspect]
     Indication: SLEEP DISORDER
     Route: 048
  2. SEROQUEL [Suspect]
     Indication: SLEEP DISORDER
     Route: 048
  3. SEROQUEL [Suspect]
     Indication: SLEEP DISORDER
     Route: 048
  4. SEROQUEL [Suspect]
     Indication: SLEEP DISORDER
     Route: 048
  5. RISPERDAL [Concomitant]
  6. VALIUM [Concomitant]

REACTIONS (5)
  - Insomnia [Unknown]
  - Abnormal sensation in eye [Unknown]
  - Restless legs syndrome [Unknown]
  - Vision blurred [Unknown]
  - Drug ineffective [Unknown]
